FAERS Safety Report 9374834 (Version 3)
Quarter: 2013Q4

REPORT INFORMATION
  Report Type: Spontaneous
  Country: US (occurrence: US)
  Receive Date: 20130628
  Receipt Date: 20131105
  Transmission Date: 20140711
  Serious: Yes (Hospitalization, Other)
  Sender: FDA-Public Use
  Company Number: US-BAYER-2013-075775

PATIENT
  Age: 30 Year
  Sex: Female
  Weight: 59.86 kg

DRUGS (1)
  1. MIRENA [Suspect]
     Indication: CONTRACEPTION
     Dosage: 20 MCG/24HR, CONT
     Route: 015
     Dates: start: 20090427, end: 20111105

REACTIONS (9)
  - Uterine perforation [Recovered/Resolved]
  - Genital haemorrhage [None]
  - Ectopic pregnancy with contraceptive device [None]
  - Ruptured ectopic pregnancy [None]
  - Device use error [None]
  - Drug ineffective [None]
  - Abdominal pain lower [None]
  - Injury [Recovered/Resolved]
  - Emotional distress [None]
